FAERS Safety Report 7218851-7 (Version None)
Quarter: 2011Q1

REPORT INFORMATION
  Report Type: 
  Country: None (occurrence: None)
  Receive Date: 20110110
  Receipt Date: 20101229
  Transmission Date: 20110831
  Serious: Yes (Death)
  Sender: FDA-Public Use
  Company Number: FR-GENENTECH-303512

PATIENT
  Sex: Male
  Weight: 72 kg

DRUGS (7)
  1. DOXORUBICIN [Concomitant]
     Indication: PRODUCT USED FOR UNKNOWN INDICATION
  2. MABTHERA [Suspect]
     Dosage: UNK
     Route: 042
  3. MABTHERA [Suspect]
     Dosage: 375 MG/M2, UNK
     Route: 042
     Dates: start: 20100616
  4. MABTHERA [Suspect]
     Indication: B-CELL LYMPHOMA
     Dosage: 375 MG/M2, UNK
     Route: 042
     Dates: start: 20100615, end: 20100616
  5. CYCLOPHOSPHAMIDE [Concomitant]
     Indication: PRODUCT USED FOR UNKNOWN INDICATION
  6. VINCRISTINE [Concomitant]
     Indication: PRODUCT USED FOR UNKNOWN INDICATION
  7. PREDNISONE [Concomitant]
     Indication: PRODUCT USED FOR UNKNOWN INDICATION

REACTIONS (4)
  - CARDIAC ARREST [None]
  - TACHYPNOEA [None]
  - HYPOTENSION [None]
  - CHILLS [None]
